FAERS Safety Report 8288334-4 (Version None)
Quarter: 2012Q2

REPORT INFORMATION
  Report Type: 
  Country: None (occurrence: None)
  Receive Date: 20120416
  Receipt Date: 20120413
  Transmission Date: 20120825
  Serious: Yes (Other)
  Sender: FDA-Public Use
  Company Number: US-PFIZER INC-2012092690

PATIENT
  Sex: Male

DRUGS (2)
  1. ACCUPRIL [Suspect]
     Dosage: 10 MG, QD
  2. LIPITOR [Suspect]
     Dosage: 40 MG, QD

REACTIONS (1)
  - MYOCARDIAL INFARCTION [None]
